FAERS Safety Report 21400769 (Version 1)
Quarter: 2022Q4

REPORT INFORMATION
  Report Type: Spontaneous
  Country: CA (occurrence: CA)
  Receive Date: 20221003
  Receipt Date: 20221003
  Transmission Date: 20230113
  Serious: Yes (Hospitalization, Other)
  Sender: FDA-Public Use
  Company Number: CA-JNJFOC-20220956452

PATIENT
  Age: 38 Year
  Sex: Male
  Weight: 80 kg

DRUGS (3)
  1. REMICADE [Suspect]
     Active Substance: INFLIXIMAB
     Indication: Crohn^s disease
     Route: 041
  2. ADALIMUMAB [Concomitant]
     Active Substance: ADALIMUMAB
     Indication: Crohn^s disease
     Route: 058
  3. PREDNISONE [Concomitant]
     Active Substance: PREDNISONE
     Route: 065

REACTIONS (7)
  - Colitis [Unknown]
  - Anal fistula [Unknown]
  - Listeriosis [Unknown]
  - Clostridium difficile infection [Unknown]
  - Thrombophlebitis [Unknown]
  - Incorrect dose administered [Unknown]
  - Off label use [Unknown]
